FAERS Safety Report 17085009 (Version 2)
Quarter: 2019Q4

REPORT INFORMATION
  Report Type: Spontaneous
  Country: US (occurrence: US)
  Receive Date: 20191127
  Receipt Date: 20191227
  Transmission Date: 20200122
  Serious: Yes (Other)
  Sender: FDA-Public Use
  Company Number: US-BRISTOL-MYERS SQUIBB COMPANY-BMS-2019-111249

PATIENT
  Sex: Female
  Weight: 72.56 kg

DRUGS (7)
  1. ORENITRAM [Suspect]
     Active Substance: TREPROSTINIL
     Indication: PRODUCT USED FOR UNKNOWN INDICATION
     Dosage: 0.875 MILLIGRAM, EVERY 8 HOURS WITH FOOD
     Route: 048
  2. WARFARIN SODIUM. [Suspect]
     Active Substance: WARFARIN SODIUM
     Indication: PULMONARY ARTERIAL HYPERTENSION
     Dosage: UNK
     Route: 065
  3. ORENITRAM [Suspect]
     Active Substance: TREPROSTINIL
     Indication: PULMONARY ARTERIAL HYPERTENSION
     Dosage: 0.5 MILLIGRAM, EVERY 8 HOURS WITH FOOD
     Route: 048
     Dates: start: 20191003
  4. ORENITRAM [Suspect]
     Active Substance: TREPROSTINIL
     Indication: PRODUCT USED FOR UNKNOWN INDICATION
     Dosage: UNK
     Route: 065
  5. ORENITRAM [Suspect]
     Active Substance: TREPROSTINIL
     Indication: PRODUCT USED FOR UNKNOWN INDICATION
     Dosage: 0.75 MILLIGRAM, EVERY 8 HOURS WITH FOOD
     Route: 048
  6. TYVASO [Suspect]
     Active Substance: TREPROSTINIL
     Indication: PULMONARY ARTERIAL HYPERTENSION
     Dosage: 3 TO 9 BREATHS, FOUR TIMES A DAY
     Dates: start: 20110623
  7. ADCIRCA [Suspect]
     Active Substance: TADALAFIL
     Indication: PULMONARY ARTERIAL HYPERTENSION
     Dosage: UNK
     Route: 065

REACTIONS (13)
  - Anal haemorrhage [Unknown]
  - Abdominal distension [Unknown]
  - Nocturia [Unknown]
  - Decreased appetite [Unknown]
  - Blood glucose decreased [Unknown]
  - Anxiety [Unknown]
  - Peripheral swelling [Unknown]
  - Fatigue [Unknown]
  - Haemorrhoids [Unknown]
  - Intestinal haemorrhage [Unknown]
  - Asthenia [Unknown]
  - Oedema [Unknown]
  - Intentional product use issue [Unknown]
